FAERS Safety Report 17514609 (Version 1)
Quarter: 2020Q1

REPORT INFORMATION
  Report Type: Spontaneous
  Country: US (occurrence: US)
  Receive Date: 20200309
  Receipt Date: 20200309
  Transmission Date: 20200409
  Serious: Yes (Hospitalization, Other)
  Sender: FDA-Public Use
  Company Number: US-DRREDDYS-USA/USA/20/0120474

PATIENT
  Age: 18 Year
  Sex: Male

DRUGS (25)
  1. OXCARBAZEPINE. [Suspect]
     Active Substance: OXCARBAZEPINE
     Indication: EPILEPSY
     Route: 065
  2. VALPROIC ACID. [Suspect]
     Active Substance: VALPROIC ACID
     Indication: EPILEPSY
     Route: 065
  3. MIDAZOLAM HYDROCHLORIDE. [Suspect]
     Active Substance: MIDAZOLAM HYDROCHLORIDE
     Indication: EPILEPSY
     Dosage: UP-TITRATED TO 60 MG/H-1
     Route: 065
  4. FELBAMATE. [Suspect]
     Active Substance: FELBAMATE
     Indication: EPILEPSY
     Route: 065
  5. LORAZEPAM INJECTION USP, 2 MG/ML AND 4 MG/ML [Suspect]
     Active Substance: LORAZEPAM
     Indication: EPILEPSY
     Route: 065
  6. PHENOBARBITAL. [Interacting]
     Active Substance: PHENOBARBITAL
     Indication: EPILEPSY
     Dosage: UP-TITRATED TO 60 MG/H-1
     Route: 065
  7. IMMUNOGLOBULIN (IMMUNOGLOBULIN NOS) [Suspect]
     Active Substance: IMMUNE GLOBULIN NOS
     Indication: EPILEPSY
     Dosage: ON HOSPITAL DAY 10
     Route: 042
  8. PROPOFOL INJECTABLE EMULSION [Suspect]
     Active Substance: PROPOFOL
     Indication: EPILEPSY
     Dosage: UP-TO 150 MICRO GRAM/KG/MIN-1 WITH INTERMITTENT BOLUSES
     Route: 065
  9. FOSPHENYTOIN SODIUM. [Interacting]
     Active Substance: FOSPHENYTOIN SODIUM
     Indication: EPILEPSY
     Route: 065
  10. KETAMINE [Suspect]
     Active Substance: KETAMINE
     Indication: EPILEPSY
     Dosage: ON HOSPITAL DAY 5
     Route: 065
  11. METHYLPREDNISOLONE. [Suspect]
     Active Substance: METHYLPREDNISOLONE
     Indication: EPILEPSY
     Dosage: ON HOSPITAL DAY 10
     Route: 042
  12. RITUXIMAB. [Suspect]
     Active Substance: RITUXIMAB
     Indication: PRODUCT USED FOR UNKNOWN INDICATION
     Route: 065
  13. ACICLOVIR [Concomitant]
     Active Substance: ACYCLOVIR
     Indication: PROPHYLAXIS
     Route: 065
  14. DOXYCYCLINE. [Concomitant]
     Active Substance: DOXYCYCLINE
     Indication: PROPHYLAXIS
     Route: 065
  15. LACOSAMIDE. [Suspect]
     Active Substance: LACOSAMIDE
     Indication: EPILEPSY
     Route: 065
  16. TOPIRAMATE. [Suspect]
     Active Substance: TOPIRAMATE
     Route: 048
  17. CEFTRIAXONE. [Concomitant]
     Active Substance: CEFTRIAXONE
     Indication: PROPHYLAXIS
     Route: 065
  18. TOPIRAMATE. [Suspect]
     Active Substance: TOPIRAMATE
     Indication: EPILEPSY
     Route: 065
  19. PENTOBARBITAL. [Suspect]
     Active Substance: PENTOBARBITAL
     Indication: EPILEPSY
     Dosage: ON HOSPITAL DAY 4,
  20. PENTOBARBITAL. [Suspect]
     Active Substance: PENTOBARBITAL
     Dosage: DOSE WAS REDUCED
  21. PENTOBARBITAL. [Suspect]
     Active Substance: PENTOBARBITAL
     Dosage: ON HOSPITAL DAY 21, PENTOBARBITAL INFUSION FOR 7 DAYS COMA WAS INITIATED
  22. LEVETIRACETAM. [Suspect]
     Active Substance: LEVETIRACETAM
     Indication: EPILEPSY
     Route: 065
  23. PHENOBARBITAL. [Interacting]
     Active Substance: PHENOBARBITAL
     Route: 048
  24. CLOBAZAM. [Suspect]
     Active Substance: CLOBAZAM
     Indication: EPILEPSY
     Route: 065
  25. VANCOMYCIN [Concomitant]
     Active Substance: VANCOMYCIN
     Indication: PROPHYLAXIS
     Route: 065

REACTIONS (5)
  - Drug ineffective [Recovering/Resolving]
  - Diabetes insipidus [Unknown]
  - Drug interaction [Unknown]
  - Drug level below therapeutic [Recovered/Resolved]
  - Drug level above therapeutic [Recovered/Resolved]
